FAERS Safety Report 7212285-7 (Version None)
Quarter: 2011Q1

REPORT INFORMATION
  Report Type: 
  Country: None (occurrence: None)
  Receive Date: 20110106
  Receipt Date: 20101224
  Transmission Date: 20110831
  Serious: Yes (Other)
  Sender: FDA-Public Use
  Company Number: PHHY2010JP83762

PATIENT
  Age: 71 Year
  Sex: Male

DRUGS (10)
  1. LIPITOR [Concomitant]
     Route: 048
  2. KREMEZIN [Concomitant]
     Route: 048
  3. RASILEZ [Suspect]
     Indication: HYPERTENSION
     Dosage: 150 MG DAILY
     Route: 048
     Dates: start: 20101105, end: 20101203
  4. NESPO [Suspect]
     Route: 058
  5. OMEPRAL [Concomitant]
     Route: 048
  6. ADALAT CC [Concomitant]
     Route: 048
  7. NU-LOTAN [Concomitant]
     Route: 048
  8. CALBLOCK [Concomitant]
     Route: 048
  9. CALCIUM POLYSTYRENE SULFONATE [Concomitant]
     Route: 047
  10. ZYLORIC [Concomitant]
     Route: 048

REACTIONS (5)
  - NEPHROSCLEROSIS [None]
  - HYPERKALAEMIA [None]
  - BLOOD UREA INCREASED [None]
  - BLOOD CREATININE INCREASED [None]
  - RENAL IMPAIRMENT [None]
